FAERS Safety Report 6416498-3 (Version None)
Quarter: 2009Q4

REPORT INFORMATION
  Report Type: 
  Country: None (occurrence: None)
  Receive Date: 20091027
  Receipt Date: 20091014
  Transmission Date: 20100525
  Serious: Yes (Other)
  Sender: FDA-Public Use
  Company Number: PHHY2009ES44634

PATIENT
  Age: 67 Year
  Sex: Male

DRUGS (4)
  1. AREDIA [Suspect]
     Indication: OSTEITIS DEFORMANS
  2. ZOLEDRONIC ACID [Suspect]
     Indication: COLON NEOPLASM
     Dosage: 5 MG, UNK
  3. ZOLEDRONIC ACID [Suspect]
     Indication: OSTEITIS DEFORMANS
  4. CALCITONIN [Concomitant]

REACTIONS (2)
  - EYE PAIN [None]
  - IRIDOCYCLITIS [None]
